FAERS Safety Report 6292768-7 (Version None)
Quarter: 2009Q3

REPORT INFORMATION
  Report Type: 
  Country: None (occurrence: None)
  Receive Date: 20090731
  Receipt Date: 20090729
  Transmission Date: 20100115
  Serious: Yes (Hospitalization)
  Sender: FDA-Public Use
  Company Number: B0586273A

PATIENT
  Age: 35 Year
  Sex: Female
  Weight: 53 kg

DRUGS (5)
  1. SERETIDE [Suspect]
     Indication: ASTHMA
     Dosage: 1PUFF TWICE PER DAY
     Route: 055
     Dates: end: 20090101
  2. NASACORT [Suspect]
     Indication: RHINITIS
     Dosage: 2PUFF PER DAY
     Route: 055
     Dates: end: 20090101
  3. EUPHYTOSE [Concomitant]
     Indication: ANXIETY
     Route: 048
  4. AERIUS [Concomitant]
     Indication: DRUG USE FOR UNKNOWN INDICATION
     Route: 048
  5. HOMEOPATHIC MEDICATION [Concomitant]
     Indication: DRUG USE FOR UNKNOWN INDICATION
     Route: 065
     Dates: start: 20090101

REACTIONS (6)
  - ASTHENIA [None]
  - DIARRHOEA [None]
  - FUNGUS STOOL IDENTIFIED [None]
  - HYPOKALAEMIA [None]
  - HYPOTENSION [None]
  - WEIGHT DECREASED [None]
